FAERS Safety Report 5808435-7 (Version None)
Quarter: 2008Q3

REPORT INFORMATION
  Report Type: 
  Country: None (occurrence: None)
  Receive Date: 20080714
  Receipt Date: 20080711
  Transmission Date: 20090109
  Serious: Yes (Death)
  Sender: FDA-Public Use
  Company Number: SG-JNJFOC-20080501846

PATIENT
  Sex: Male

DRUGS (6)
  1. PALIPERIDONE ER [Suspect]
     Indication: SCHIZOPHRENIA
     Route: 048
  2. CLOMIPRAMINE HCL [Concomitant]
     Indication: OBSESSIVE-COMPULSIVE DISORDER
     Route: 048
  3. FLUOXETINE [Concomitant]
     Route: 048
  4. FLUOXETINE [Concomitant]
     Indication: OBSESSIVE-COMPULSIVE DISORDER
     Route: 048
  5. VALPROATE SODIUM [Concomitant]
     Indication: AGGRESSION
     Route: 048
  6. BENZTROPINE MESYLATE [Concomitant]
     Route: 048

REACTIONS (1)
  - DEATH [None]
